FAERS Safety Report 19391434 (Version 2)
Quarter: 2021Q2

REPORT INFORMATION
  Report Type: Spontaneous
  Country: US (occurrence: US)
  Receive Date: 20210608
  Receipt Date: 20210611
  Transmission Date: 20210717
  Serious: Yes (Hospitalization, Other)
  Sender: FDA-Public Use
  Company Number: US-PFIZER INC-2021600598

PATIENT
  Age: 76 Year
  Sex: Female

DRUGS (1)
  1. PREMARIN [Suspect]
     Active Substance: ESTROGENS, CONJUGATED
     Indication: HOT FLUSH

REACTIONS (7)
  - Pain [Unknown]
  - Hallucination [Unknown]
  - Loss of consciousness [Unknown]
  - Spinal stenosis [Unknown]
  - Tachycardia [Unknown]
  - Drug dependence [Unknown]
  - Therapeutic response unexpected [Unknown]
